FAERS Safety Report 11110964 (Version 1)
Quarter: 2015Q2

REPORT INFORMATION
  Report Type: Spontaneous
  Country: KR (occurrence: KR)
  Receive Date: 20150513
  Receipt Date: 20150513
  Transmission Date: 20150821
  Serious: Yes (Other)
  Sender: FDA-Public Use
  Company Number: KR-SA-2015SA062800

PATIENT
  Sex: Female

DRUGS (1)
  1. STILNOX [Suspect]
     Active Substance: ZOLPIDEM TARTRATE
     Indication: SEXUAL ABUSE
     Route: 048
     Dates: start: 20140823, end: 20140823

REACTIONS (3)
  - Intentional product misuse [Unknown]
  - Victim of sexual abuse [Unknown]
  - Expired product administered [Unknown]

NARRATIVE: CASE EVENT DATE: 20140823
